FAERS Safety Report 5191240-5 (Version None)
Quarter: 2006Q4

REPORT INFORMATION
  Report Type: 
  Country: None (occurrence: None)
  Receive Date: 20061215
  Receipt Date: 20061214
  Transmission Date: 20070319
  Serious: Yes (Hospitalization, Other)
  Sender: FDA-Public Use
  Company Number: FRWYE840514DEC06

PATIENT
  Age: 6 Year
  Sex: Female

DRUGS (2)
  1. ADVIL [Suspect]
     Indication: PAIN
     Dosage: 1 DOSE 3X PER 1 DAY ORAL
     Route: 048
     Dates: start: 20061201, end: 20061201
  2. CODEINE PHOSPHATE (CODEINE PHOSPHATE) [Suspect]
     Dosage: ORAL
     Route: 048
     Dates: start: 20061201, end: 20061201

REACTIONS (1)
  - PANCREATITIS ACUTE [None]
